FAERS Safety Report 5315548-5 (Version None)
Quarter: 2007Q2

REPORT INFORMATION
  Report Type: 
  Country: None (occurrence: None)
  Receive Date: 20070503
  Receipt Date: 20070420
  Transmission Date: 20071010
  Serious: Yes (Hospitalization)
  Sender: FDA-Public Use
  Company Number: NO-PFIZER INC-2007031849

PATIENT
  Sex: Male

DRUGS (3)
  1. ARTHROTEC [Suspect]
     Indication: MUSCULOSKELETAL PAIN
     Route: 048
     Dates: start: 20050601, end: 20060623
  2. ALBYL-E [Concomitant]
     Indication: MYOCARDIAL INFARCTION
     Route: 048
     Dates: start: 19970101
  3. SELO-ZOK [Concomitant]
     Indication: MYOCARDIAL INFARCTION
     Route: 048
     Dates: start: 19970101

REACTIONS (3)
  - CARDIAC ARREST [None]
  - COMA [None]
  - DYSPHONIA [None]
